FAERS Safety Report 21711379 (Version 1)
Quarter: 2022Q4

REPORT INFORMATION
  Report Type: Report from Study
  Country: US (occurrence: US)
  Receive Date: 20221212
  Receipt Date: 20221212
  Transmission Date: 20230112
  Serious: No
  Sender: FDA-Public Use
  Company Number: US-ABBVIE-22K-163-4524940-00

PATIENT
  Sex: Female

DRUGS (2)
  1. RINVOQ [Suspect]
     Active Substance: UPADACITINIB
     Indication: Psoriatic arthropathy
     Dosage: FORM STRENGTH 15 MG
     Route: 048
     Dates: start: 202206, end: 20220819
  2. OMEPRAZOLE [Concomitant]
     Active Substance: OMEPRAZOLE
     Indication: Product used for unknown indication

REACTIONS (6)
  - Abdominal pain upper [Unknown]
  - Urinary tract infection [Unknown]
  - Diarrhoea [Unknown]
  - Arthritis [Unknown]
  - Ulcer [Unknown]
  - Therapeutic product effect decreased [Not Recovered/Not Resolved]
